FAERS Safety Report 5484875-3 (Version None)
Quarter: 2007Q4

REPORT INFORMATION
  Report Type: 
  Country: None (occurrence: None)
  Receive Date: 20071010
  Receipt Date: 20070924
  Transmission Date: 20080405
  Serious: Yes (Hospitalization)
  Sender: FDA-Public Use
  Company Number: DSA_30679_2007

PATIENT
  Sex: Male

DRUGS (10)
  1. TEMESTA [Suspect]
     Indication: DRUG USE FOR UNKNOWN INDICATION
     Dosage: DF (UKNOWN)
     Dates: start: 20070723, end: 20070730
  2. EFFEXOR [Suspect]
     Indication: DRUG USE FOR UNKNOWN INDICATION
     Dosage: 37.5 MG QD ORAL, 75 MG QD ORAL
     Route: 048
     Dates: start: 20070809, end: 20070814
  3. EFFEXOR [Suspect]
     Indication: DRUG USE FOR UNKNOWN INDICATION
     Dosage: 37.5 MG QD ORAL, 75 MG QD ORAL
     Route: 048
     Dates: start: 20070815, end: 20070817
  4. AXURA                     (AXURA - MEMANTINE HYDROCHLORIDE) [Suspect]
     Indication: DRUG USE FOR UNKNOWN INDICATION
     Dosage: 5 MG QD ORAL
     Route: 048
     Dates: start: 20070814, end: 20070817
  5. REMINYL                      (REMINYL      -     GALATAMINE) [Suspect]
     Indication: DRUG USE FOR UNKNOWN INDICATION
     Dosage: 4 MG QD ORAL
     Route: 048
     Dates: start: 20070806, end: 20070809
  6. TORSEMIDE [Concomitant]
  7. REMERON [Concomitant]
  8. ASPIRIN [Concomitant]
  9. PRAVASTATIN SODIUM [Concomitant]
  10. PLAVIX [Concomitant]

REACTIONS (6)
  - AGGRESSION [None]
  - DELUSION [None]
  - DRUG WITHDRAWAL SYNDROME [None]
  - RESTLESSNESS [None]
  - SLEEP DISORDER [None]
  - TREATMENT NONCOMPLIANCE [None]
